FAERS Safety Report 5734491-0 (Version None)
Quarter: 2008Q2

REPORT INFORMATION
  Report Type: 
  Country: None (occurrence: None)
  Receive Date: 20080512
  Receipt Date: 20080428
  Transmission Date: 20081010
  Serious: Yes (Hospitalization)
  Sender: FDA-Public Use
  Company Number: GB-BAYER-200817564GPV

PATIENT
  Age: 81 Year
  Sex: Male

DRUGS (3)
  1. ASPIRIN [Suspect]
     Indication: MYOCARDIAL ISCHAEMIA
     Route: 065
  2. WARFARIN SODIUM [Suspect]
     Indication: MYOCARDIAL ISCHAEMIA
     Route: 065
  3. ANTIBIOTICS [Suspect]
     Indication: PHARYNGOLARYNGEAL PAIN
     Route: 065

REACTIONS (4)
  - INTERNATIONAL NORMALISED RATIO INCREASED [None]
  - OBSTRUCTIVE AIRWAYS DISORDER [None]
  - PHARYNGEAL HAEMORRHAGE [None]
  - TONGUE HAEMATOMA [None]
